FAERS Safety Report 16332144 (Version 1)
Quarter: 2019Q2

REPORT INFORMATION
  Report Type: Spontaneous
  Country: US (occurrence: US)
  Receive Date: 20190519
  Receipt Date: 20190519
  Transmission Date: 20190711
  Serious: Yes (Other)
  Sender: FDA-Public Use
  Company Number: None

PATIENT
  Sex: Male

DRUGS (1)
  1. VENTOLIN HFA [Suspect]
     Active Substance: ALBUTEROL SULFATE
     Route: 055

REACTIONS (7)
  - Insomnia [None]
  - Irritability [None]
  - Anxiety [None]
  - Heart rate increased [None]
  - Palpitations [None]
  - Chest discomfort [None]
  - Treatment failure [None]

NARRATIVE: CASE EVENT DATE: 20190402
